FAERS Safety Report 15713745 (Version 1)
Quarter: 2018Q4

REPORT INFORMATION
  Report Type: Spontaneous
  Country: SE (occurrence: SE)
  Receive Date: 20181212
  Receipt Date: 20181212
  Transmission Date: 20190205
  Serious: Yes (Hospitalization)
  Sender: FDA-Public Use
  Company Number: SE-CORDEN PHARMA LATINA S.P.A.-SE-2018COR000152

PATIENT

DRUGS (7)
  1. CYCLOPHOSPHAMIDE. [Suspect]
     Active Substance: CYCLOPHOSPHAMIDE
     Indication: NEUROBLASTOMA
     Dosage: DAY 20, UNK
     Route: 065
  2. CERITINIB [Suspect]
     Active Substance: CERITINIB
     Dosage: 540 MG/M2 BODY SURFACE AREA ONCE DAILY
     Route: 065
  3. VINCRISTINE [Suspect]
     Active Substance: VINCRISTINE
     Indication: NEUROBLASTOMA
     Dosage: DAY 0,10, AND 20, UNK
     Route: 065
  4. ETOPOSIDE. [Suspect]
     Active Substance: ETOPOSIDE
     Indication: NEUROBLASTOMA
     Dosage: DAY 0 AND 20, UNK
     Route: 065
  5. CERITINIB [Suspect]
     Active Substance: CERITINIB
     Indication: NEUROBLASTOMA
     Dosage: 225 MG ONCE DAILY (450 MG/M2 BODY SURFACE AREA) FOR 10.5 MONTHS
     Route: 065
  6. CARBOPLATIN. [Suspect]
     Active Substance: CARBOPLATIN
     Indication: NEUROBLASTOMA
     Dosage: DAY 0, UNK
     Route: 065
  7. CISPLATIN. [Suspect]
     Active Substance: CISPLATIN
     Indication: NEUROBLASTOMA
     Dosage: DAY 10, UNK
     Route: 065

REACTIONS (8)
  - Thrombocytopenia [Recovered/Resolved]
  - Sepsis [Unknown]
  - Colitis [Unknown]
  - Bone marrow toxicity [Recovered/Resolved]
  - Intestinal haemorrhage [Unknown]
  - Anaemia [Recovered/Resolved]
  - Respiratory failure [Unknown]
  - Neutropenia [Recovered/Resolved]
